FAERS Safety Report 7373275-7 (Version None)
Quarter: 2011Q1

REPORT INFORMATION
  Report Type: 
  Country: None (occurrence: None)
  Receive Date: 20110324
  Receipt Date: 20110318
  Transmission Date: 20110831
  Serious: Yes (Hospitalization)
  Sender: FDA-Public Use
  Company Number: FR-PFIZER INC-2011059654

PATIENT
  Age: 75 Year
  Sex: Female

DRUGS (17)
  1. AMITRIPTYLINE HCL [Concomitant]
     Dosage: UNK
  2. TAHOR [Concomitant]
     Dosage: UNK
  3. XYZAL [Concomitant]
     Dosage: UNK
  4. ENDOXAN [Concomitant]
     Dosage: 50 MG, UNK
  5. AUGMENTIN [Concomitant]
     Dosage: UNK
  6. RIVOTRIL [Suspect]
     Dosage: 2.5 MG/ML SOLUTION, ORAL DROPS, TWO DROPS AM, THREE DROPS AT NOON,  SEVEN DROPS PM
     Route: 048
     Dates: end: 20101019
  7. BACLOFEN [Suspect]
     Dosage: 1 DF, 2X/DAY
     Route: 048
  8. PREDNISONE [Concomitant]
     Dosage: UNK
  9. ATARAX [Suspect]
     Dosage: 50 MG PER DAY
     Route: 048
     Dates: end: 20101019
  10. PLAVIX [Concomitant]
     Dosage: UNK
  11. CHLORAMINOPHENE [Concomitant]
     Dosage: UNK
  12. MODANE [Concomitant]
     Dosage: UNK
  13. OXYCONTIN [Concomitant]
     Dosage: UNK
  14. TARDYFERON [Concomitant]
     Dosage: UNK
  15. LYRICA [Suspect]
     Dosage: 150 MG, 2X/DAY
     Route: 048
  16. NEXIUM [Concomitant]
     Dosage: 40 MG, UNK
  17. KARDEGIC [Concomitant]
     Dosage: 75 MG, UNK

REACTIONS (3)
  - SOMNOLENCE [None]
  - ACCIDENTAL OVERDOSE [None]
  - ALTERED STATE OF CONSCIOUSNESS [None]
